FAERS Safety Report 10154786 (Version 1)
Quarter: 2014Q2

REPORT INFORMATION
  Report Type: Spontaneous
  Country: ZA (occurrence: ZA)
  Receive Date: 20140506
  Receipt Date: 20140506
  Transmission Date: 20141212
  Serious: Yes (Hospitalization)
  Sender: FDA-Public Use
  Company Number: ZA-SA-2014SA053268

PATIENT
  Age: 27 Year
  Sex: Female
  Weight: 81 kg

DRUGS (2)
  1. CLEXANE [Suspect]
     Indication: EXPOSURE DURING PREGNANCY
     Route: 058
     Dates: start: 20131212
  2. TEGRETOL [Suspect]
     Indication: EPILEPSY
     Route: 048

REACTIONS (2)
  - Abortion threatened [Unknown]
  - Exposure during pregnancy [Unknown]
